FAERS Safety Report 17964020 (Version 1)
Quarter: 2020Q2

REPORT INFORMATION
  Report Type: Spontaneous
  Country: FR (occurrence: FR)
  Receive Date: 20200630
  Receipt Date: 20200630
  Transmission Date: 20200714
  Serious: Yes (Other)
  Sender: FDA-Public Use
  Company Number: FR-VERITY PHARMACEUTICALS, INC.-2020VTY00122

PATIENT
  Age: 9 Year
  Sex: Female

DRUGS (1)
  1. TRELSTAR [Suspect]
     Active Substance: TRIPTORELIN PAMOATE
     Indication: PRECOCIOUS PUBERTY
     Dosage: 1 DOSAGE UNITS, 1X/MONTH
     Route: 051
     Dates: start: 201905, end: 20200101

REACTIONS (2)
  - Suicidal ideation [Not Recovered/Not Resolved]
  - Anxiety [Not Recovered/Not Resolved]
